FAERS Safety Report 5632243-3 (Version None)
Quarter: 2008Q1

REPORT INFORMATION
  Report Type: 
  Country: None (occurrence: None)
  Receive Date: 20080220
  Receipt Date: 20080211
  Transmission Date: 20080703
  Serious: Yes (Other)
  Sender: FDA-Public Use
  Company Number: IN-SANOFI-SYNTHELABO-A01200800942

PATIENT
  Age: 65 Year
  Sex: Male

DRUGS (9)
  1. PANTOPRAZOLE [Concomitant]
     Indication: CORONARY ARTERY DISEASE
     Route: 065
  2. ATORVASTATIN CALCIUM [Concomitant]
     Indication: CORONARY ARTERY DISEASE
     Route: 065
  3. ENALAPRIL MALEATE [Concomitant]
     Indication: CORONARY ARTERY DISEASE
     Route: 065
  4. ECOSPRIN [Concomitant]
     Indication: CORONARY ARTERY DISEASE
     Route: 065
  5. ALPRAZOLAM [Concomitant]
     Indication: DEPRESSION
     Route: 065
  6. ALPRAZOLAM [Concomitant]
     Indication: ANXIETY
     Route: 065
  7. MIRTAZAPINE [Concomitant]
     Indication: DEPRESSION
     Route: 065
  8. MIRTAZAPINE [Concomitant]
     Indication: ANXIETY
     Route: 065
  9. ZOLPIDEM [Suspect]
     Indication: INSOMNIA
     Dosage: 10 MG
     Route: 065

REACTIONS (1)
  - DELIRIUM [None]
